FAERS Safety Report 7267515-2 (Version None)
Quarter: 2011Q1

REPORT INFORMATION
  Report Type: 
  Country: None (occurrence: None)
  Receive Date: 20110119
  Receipt Date: 20110106
  Transmission Date: 20110831
  Serious: Yes (Other)
  Sender: FDA-Public Use
  Company Number: 2011SP000944

PATIENT
  Sex: Female

DRUGS (1)
  1. IMPLANON [Suspect]
     Indication: PRODUCT USED FOR UNKNOWN INDICATION
     Dates: start: 20080325, end: 20081201

REACTIONS (5)
  - ANGER [None]
  - MOOD SWINGS [None]
  - ABORTION [None]
  - PREGNANCY WITH IMPLANT CONTRACEPTIVE [None]
  - DRUG EXPOSURE DURING PREGNANCY [None]
